FAERS Safety Report 5761976-3 (Version None)
Quarter: 2008Q2

REPORT INFORMATION
  Report Type: 
  Country: None (occurrence: None)
  Receive Date: 20080603
  Receipt Date: 20080519
  Transmission Date: 20081010
  Serious: Yes (Other)
  Sender: FDA-Public Use
  Company Number: 028006

PATIENT
  Age: 27 Year
  Sex: Male

DRUGS (1)
  1. CLARAVIS [Suspect]
     Indication: ACNE
     Dosage: 40 M G, QD, ORAL
     Route: 048
     Dates: start: 20080411

REACTIONS (1)
  - TRANSMISSION OF DRUG VIA SEMEN [None]
